FAERS Safety Report 6810305-2 (Version None)
Quarter: 2010Q2

REPORT INFORMATION
  Report Type: 
  Country: None (occurrence: None)
  Receive Date: 20100630
  Receipt Date: 20100626
  Transmission Date: 20101027
  Serious: Yes (Other)
  Sender: FDA-Public Use
  Company Number: US-CEPHALON-2010003481

PATIENT

DRUGS (1)
  1. TREANDA [Suspect]
     Indication: WALDENSTROM'S MACROGLOBULINAEMIA
     Route: 042

REACTIONS (2)
  - SKIN REACTION [None]
  - SQUAMOUS CELL CARCINOMA [None]
